FAERS Safety Report 4784549-8 (Version None)
Quarter: 2005Q3

REPORT INFORMATION
  Report Type: 
  Country: None (occurrence: None)
  Receive Date: 20050930
  Receipt Date: 20050921
  Transmission Date: 20060218
  Serious: Yes (Death, Other)
  Sender: FDA-Public Use
  Company Number: US-JNJFOC-20050905006

PATIENT
  Age: 83 Year
  Sex: Male

DRUGS (1)
  1. NATRECOR [Suspect]
     Route: 042

REACTIONS (2)
  - ACUTE MYELOID LEUKAEMIA [None]
  - MYELOID LEUKAEMIA [None]
